FAERS Safety Report 10176427 (Version 1)
Quarter: 2014Q2

REPORT INFORMATION
  Report Type: Spontaneous
  Country: US (occurrence: None)
  Receive Date: 20140515
  Receipt Date: 20140515
  Transmission Date: 20141212
  Serious: Yes (Life-Threatening, Hospitalization, Other)
  Sender: FDA-Public Use
  Company Number: None

PATIENT
  Age: 64 Year
  Sex: Female
  Weight: 56.7 kg

DRUGS (10)
  1. FENTANYL TRANSDERMAL SYSTEM [Suspect]
     Indication: PAIN
     Dosage: 1 PATCH EVERY 3 DAYS, 1 PATCH EVERY 3 DAYS, SKIN
     Route: 061
     Dates: start: 20130919, end: 20130919
  2. GABAPENTIN [Concomitant]
  3. FUROSEMIDE [Concomitant]
  4. POTASSIUM [Concomitant]
  5. ASPIRIN [Concomitant]
  6. ZOLOFT [Concomitant]
  7. LEVETIRACETAM [Concomitant]
  8. AMLODIPINE BESYLATE [Concomitant]
  9. ROCURONIUM [Concomitant]
  10. ADVAIR [Concomitant]

REACTIONS (4)
  - Drug withdrawal syndrome [None]
  - Disorientation [None]
  - Vomiting [None]
  - Faecal incontinence [None]
